FAERS Safety Report 18762641 (Version 1)
Quarter: 2021Q1

REPORT INFORMATION
  Report Type: Spontaneous
  Country: US (occurrence: US)
  Receive Date: 20210120
  Receipt Date: 20210120
  Transmission Date: 20210419
  Serious: Yes (Other)
  Sender: FDA-Public Use
  Company Number: US-AMERICAN REGENT INC-2021000161

PATIENT
  Age: 50 Year
  Sex: Female

DRUGS (4)
  1. ESMOLOL HYDROCHLORIDE INJECTION (0517?1810?01) [Suspect]
     Active Substance: ESMOLOL HYDROCHLORIDE
     Indication: HYPERTENSION
  2. NITROGLYCERIN INJECTION, USP (4810?10) [Concomitant]
     Active Substance: NITROGLYCERIN
     Indication: HYPERTENSION
     Dosage: UNK
     Route: 042
  3. ESMOLOL HYDROCHLORIDE INJECTION (0517?1810?01) [Suspect]
     Active Substance: ESMOLOL HYDROCHLORIDE
     Indication: SUPRAVENTRICULAR TACHYCARDIA
     Dosage: UNK
     Route: 042
  4. ADENOSINE INJECTION, USP (6404?10) [Suspect]
     Active Substance: ADENOSINE
     Indication: SUPRAVENTRICULAR TACHYCARDIA
     Dosage: UNK
     Route: 042

REACTIONS (4)
  - Supraventricular tachycardia [Recovered/Resolved]
  - Hypertension [Recovering/Resolving]
  - Drug ineffective [Recovering/Resolving]
  - Product use in unapproved indication [Unknown]
